FAERS Safety Report 11157657 (Version 2)
Quarter: 2015Q2

REPORT INFORMATION
  Report Type: Spontaneous
  Country: AT (occurrence: AT)
  Receive Date: 20150603
  Receipt Date: 20150612
  Transmission Date: 20150821
  Serious: Yes (Death, Hospitalization)
  Sender: FDA-Public Use
  Company Number: AT-ROCHE-1586471

PATIENT
  Age: 81 Year
  Sex: Female
  Weight: 66 kg

DRUGS (6)
  1. GAZYVARO [Suspect]
     Active Substance: OBINUTUZUMAB
     Dosage: 1. CYCLE
     Route: 041
     Dates: start: 20150311, end: 20150311
  2. GAZYVARO [Suspect]
     Active Substance: OBINUTUZUMAB
     Indication: CHRONIC LYMPHOCYTIC LEUKAEMIA
     Dosage: 1. CYCLE
     Route: 041
     Dates: start: 20150310, end: 20150310
  3. LEUKERAN [Suspect]
     Active Substance: CHLORAMBUCIL
     Indication: CHRONIC LYMPHOCYTIC LEUKAEMIA
     Dosage: 1 CYCE, 3-3-3
     Route: 048
     Dates: start: 20150310
  4. MEXALEN [Concomitant]
     Active Substance: LUBIPROSTONE
     Indication: PREMEDICATION
     Route: 048
     Dates: start: 20150310, end: 20150311
  5. SOLUDACORTIN [Concomitant]
     Indication: PREMEDICATION
     Route: 042
     Dates: start: 20150310, end: 20150311
  6. DIBONDRIN [Concomitant]
     Indication: PREMEDICATION
     Route: 042
     Dates: start: 20150310, end: 20150311

REACTIONS (2)
  - Subdural haematoma [Fatal]
  - Fall [Fatal]

NARRATIVE: CASE EVENT DATE: 20150312
